FAERS Safety Report 7520026-9 (Version None)
Quarter: 2011Q2

REPORT INFORMATION
  Report Type: 
  Country: None (occurrence: None)
  Receive Date: 20110602
  Receipt Date: 20110520
  Transmission Date: 20111010
  Serious: Yes (Hospitalization, Other)
  Sender: FDA-Public Use
  Company Number: PHHY2009JP15343

PATIENT
  Age: 53 Year
  Sex: Female

DRUGS (2)
  1. CHEMOTHERAPEUTICS NOS [Concomitant]
  2. ZOMETA [Suspect]
     Indication: METASTASES TO BONE
     Dosage: 4 MG, QMO
     Route: 041

REACTIONS (7)
  - TOOTH LOSS [None]
  - OSTEONECROSIS OF JAW [None]
  - RESORPTION BONE INCREASED [None]
  - PARANASAL SINUS MUCOSAL HYPERTROPHY [None]
  - EXPOSED BONE IN JAW [None]
  - TOOTHACHE [None]
  - PAIN IN JAW [None]
